FAERS Safety Report 9251710 (Version 1)
Quarter: 2013Q2

REPORT INFORMATION
  Report Type: Spontaneous
  Country: US (occurrence: US)
  Receive Date: 20130424
  Receipt Date: 20130424
  Transmission Date: 20140414
  Serious: No
  Sender: FDA-Public Use
  Company Number: PHEH2013US008879

PATIENT
  Age: 77 Year
  Sex: Male

DRUGS (9)
  1. TASIGNA [Suspect]
     Dosage: 200 MG, QID
     Route: 048
     Dates: start: 20130415
  2. FUROSEMIDE [Concomitant]
     Dosage: 40 MG, QD
  3. CARVEDILOL [Concomitant]
     Dosage: 6.25 MG, BID
  4. SIMVASTATIN [Concomitant]
     Dosage: 20 MG, QD
  5. KLOR-CON [Concomitant]
     Dosage: 20 ML, QD
  6. LISIPRIL D [Concomitant]
     Dosage: 2.5 MG, QD
  7. FOLBIC [Concomitant]
     Dosage: 2.5 MG, QD
  8. ALLOPURINOL [Concomitant]
     Dosage: 300 MG, QD
  9. CLOPIDOGREL [Concomitant]
     Dosage: 75 MG, QD

REACTIONS (1)
  - Abdominal pain [Not Recovered/Not Resolved]
